FAERS Safety Report 8348961-2 (Version None)
Quarter: 2012Q2

REPORT INFORMATION
  Report Type: 
  Country: None (occurrence: None)
  Receive Date: 20120510
  Receipt Date: 20120507
  Transmission Date: 20120825
  Serious: Yes (Other)
  Sender: FDA-Public Use
  Company Number: US-SANOFI-AVENTIS-2012SA022651

PATIENT
  Age: 82 Year
  Sex: Female
  Weight: 55.91 kg

DRUGS (14)
  1. XANAX [Concomitant]
  2. IRON PREPARATIONS [Concomitant]
     Dosage: 162-115.2-1MG
  3. SOLOSTAR [Suspect]
  4. JANUVIA [Concomitant]
  5. ATORVASTATIN CALCIUM [Concomitant]
  6. EPIPEN [Concomitant]
     Dosage: 0.3 MG/0.3ML
  7. LANTUS [Suspect]
     Dosage: 14 UNITS EVERY MORNING DOSE:14 UNIT(S)
     Route: 058
     Dates: start: 20090805
  8. IRON [Concomitant]
     Indication: IRON DEFICIENCY
  9. ACIPHEX [Concomitant]
  10. BUMETANIDE [Concomitant]
     Indication: FLUID RETENTION
  11. POTASSIUM CHLORIDE [Concomitant]
  12. COREG [Concomitant]
  13. DIGOXIN [Suspect]
  14. COUMADIN [Concomitant]

REACTIONS (4)
  - RASH [None]
  - SYNCOPE [None]
  - PNEUMONIA [None]
  - TOXICITY TO VARIOUS AGENTS [None]
